FAERS Safety Report 6471768-8 (Version None)
Quarter: 2009Q4

REPORT INFORMATION
  Report Type: 
  Country: None (occurrence: None)
  Receive Date: 20091203
  Receipt Date: 20080324
  Transmission Date: 20100525
  Serious: Yes (Hospitalization)
  Sender: FDA-Public Use
  Company Number: US-ELI_LILLY_AND_COMPANY-US200803001687

PATIENT
  Sex: Male
  Weight: 112.93 kg

DRUGS (10)
  1. BYETTA [Suspect]
     Indication: TYPE 2 DIABETES MELLITUS
     Dosage: 5 UG, 2/D
     Route: 058
     Dates: start: 20061001, end: 20061101
  2. BYETTA [Suspect]
     Dosage: 10 UG, 2/D
     Route: 058
     Dates: start: 20061101, end: 20061101
  3. GLUCOPHAGE [Concomitant]
     Indication: DIABETES MELLITUS
     Dosage: 750 MG, UNKNOWN
  4. ACTOS [Concomitant]
     Indication: DIABETES MELLITUS
     Dosage: 45 MG, UNKNOWN
  5. ZOCOR [Concomitant]
     Dosage: 20 MG, UNKNOWN
  6. METOPROLOL [Concomitant]
     Indication: HYPERTENSION
     Dosage: 50 MG, UNKNOWN
  7. PRILOSEC [Concomitant]
  8. ZYRTEC [Concomitant]
     Dosage: 10 MG, UNKNOWN
  9. SINGULAIR [Concomitant]
  10. INSULIN [Concomitant]
     Indication: DIABETES MELLITUS
     Dosage: 50 U, UNKNOWN

REACTIONS (4)
  - BLOOD GLUCOSE INCREASED [None]
  - DRUG INEFFECTIVE [None]
  - OSTEOARTHRITIS [None]
  - WEIGHT INCREASED [None]
